FAERS Safety Report 8464333 (Version 3)
Quarter: 2013Q3

REPORT INFORMATION
  Report Type: Spontaneous
  Country: FR (occurrence: FR)
  Receive Date: 20120319
  Receipt Date: 20130806
  Transmission Date: 20140515
  Serious: Yes (Other)
  Sender: FDA-Public Use
  Company Number: FR-BIOGENIDEC-2012BI008635

PATIENT
  Age: 42 Year
  Sex: Male

DRUGS (13)
  1. TYSABRI [Suspect]
     Indication: MULTIPLE SCLEROSIS
     Route: 042
     Dates: start: 200712, end: 20101104
  2. TYSABRI [Suspect]
     Indication: MULTIPLE SCLEROSIS
     Route: 042
     Dates: start: 201108, end: 20130129
  3. TYSABRI [Suspect]
     Indication: MULTIPLE SCLEROSIS
  4. LYSANXIA [Concomitant]
     Dates: start: 2006
  5. LYSANXIA [Concomitant]
     Dates: start: 2006
  6. DAFALGAN [Concomitant]
     Dates: start: 2006
  7. LUDIOMIL [Concomitant]
     Dates: start: 2006
  8. ATARAX [Concomitant]
     Dates: start: 2006
  9. MECIR [Concomitant]
     Dates: start: 2006
  10. EFFEXOR SR [Concomitant]
     Dates: start: 2006
  11. ISIMIG [Concomitant]
     Dates: start: 2006
  12. LAROXYL [Concomitant]
     Route: 048
     Dates: start: 2006
  13. STILNOX [Concomitant]
     Dates: start: 2006

REACTIONS (1)
  - Melanocytic naevus [Unknown]
